FAERS Safety Report 5892172-7 (Version None)
Quarter: 2008Q3

REPORT INFORMATION
  Report Type: 
  Country: None (occurrence: None)
  Receive Date: 20080908
  Receipt Date: 20080606
  Transmission Date: 20090109
  Serious: No
  Sender: FDA-Public Use
  Company Number: 002#2#2008-00492

PATIENT
  Age: 76 Year
  Sex: Male
  Weight: 62.5964 kg

DRUGS (6)
  1. NEUPRO [Suspect]
     Indication: PARKINSON'S DISEASE
     Dosage: 4MG/24H, 1 IN 1D, TRANSDERMAL
     Route: 062
     Dates: start: 20070301
  2. SINEMET [Concomitant]
  3. ELDEPRYL [Concomitant]
  4. ARICEPT [Concomitant]
  5. POTASSIUM CHLORIDE [Concomitant]
  6. NEXIUM [Concomitant]

REACTIONS (1)
  - DRUG INEFFECTIVE [None]
